FAERS Safety Report 16053956 (Version 1)
Quarter: 2019Q1

REPORT INFORMATION
  Report Type: Report from Study
  Country: CN (occurrence: CN)
  Receive Date: 20190308
  Receipt Date: 20190308
  Transmission Date: 20190418
  Serious: Yes (Hospitalization)
  Sender: FDA-Public Use
  Company Number: CN-PFIZER INC-2019099656

PATIENT
  Age: 61 Year
  Sex: Female
  Weight: 70 kg

DRUGS (11)
  1. METHYLPREDNISOLONE. [Suspect]
     Active Substance: METHYLPREDNISOLONE
     Dosage: 24 QD, UNK
     Route: 048
     Dates: start: 20180919, end: 20181018
  2. METHYLPREDNISOLONE. [Suspect]
     Active Substance: METHYLPREDNISOLONE
     Dosage: 12 QD, UNK
     Route: 048
     Dates: start: 20181219, end: 20190118
  3. ASPIRIN (E.C.) [Concomitant]
     Active Substance: ASPIRIN
     Indication: HYPERTENSION
     Dosage: 75 MG, 1X/DAY
     Route: 048
     Dates: start: 20180720
  4. OMEPRAZOLE (E.C) [Concomitant]
     Indication: HYPERCHLORHYDRIA
     Dosage: 20 MG, 1X/DAY
     Route: 048
     Dates: start: 20180806
  5. LEVAMLODIPINE BESILATE [Concomitant]
     Active Substance: LEVAMLODIPINE BESYLATE
     Indication: HYPERTENSION
     Dosage: 2.5 MG, 1X/DAY
     Route: 048
     Dates: start: 20180407
  6. METHYLPREDNISOLONE. [Suspect]
     Active Substance: METHYLPREDNISOLONE
     Dosage: 16 QD, UNK
     Route: 048
     Dates: start: 20181119, end: 20181218
  7. METHYLPREDNISOLONE. [Suspect]
     Active Substance: METHYLPREDNISOLONE
     Dosage: 8 QD, UNK
     Route: 048
     Dates: start: 20190119, end: 20190218
  8. METHYLPREDNISOLONE. [Suspect]
     Active Substance: METHYLPREDNISOLONE
     Dosage: 4 QD, UNK
     Route: 048
     Dates: start: 20190219
  9. VALSARTAN. [Concomitant]
     Active Substance: VALSARTAN
     Indication: NEPHROPATHY
     Dosage: 80 MG, 2X/DAY
     Route: 048
     Dates: start: 20181012
  10. METHYLPREDNISOLONE. [Suspect]
     Active Substance: METHYLPREDNISOLONE
     Dosage: 28 QD, UNK
     Route: 048
     Dates: start: 20180719, end: 20180918
  11. METHYLPREDNISOLONE. [Suspect]
     Active Substance: METHYLPREDNISOLONE
     Dosage: 20 QD, UNK
     Route: 048
     Dates: start: 20181019, end: 20181118

REACTIONS (1)
  - Pyelonephritis acute [Recovering/Resolving]

NARRATIVE: CASE EVENT DATE: 20190228
